FAERS Safety Report 23726185 (Version 1)
Quarter: 2024Q2

REPORT INFORMATION
  Report Type: Spontaneous
  Country: IE (occurrence: IE)
  Receive Date: 20240410
  Receipt Date: 20240410
  Transmission Date: 20240717
  Serious: Yes (Other)
  Sender: FDA-Public Use
  Company Number: None

PATIENT
  Age: 46 Year
  Sex: Male

DRUGS (26)
  1. LEVETIRACETAM [Suspect]
     Active Substance: LEVETIRACETAM
     Indication: Product used for unknown indication
     Dosage: 1500 MILLIGRAM, 2X/DAY (BID)
     Route: 048
     Dates: start: 20240228
  2. ACETAMINOPHEN [Suspect]
     Active Substance: ACETAMINOPHEN
     Indication: Product used for unknown indication
     Dosage: 1 GRAM, AS NEEDED (PRN)
     Dates: start: 20240228
  3. POLYETHYLENE GLYCOL 3350\POTASSIUM CHLORIDE\SODIUM BICARBONATE\SODIUM [Suspect]
     Active Substance: POLYETHYLENE GLYCOL 3350\POTASSIUM CHLORIDE\SODIUM BICARBONATE\SODIUM CHLORIDE
     Indication: Product used for unknown indication
     Dosage: 1 SACHET PRN
     Route: 048
     Dates: start: 20240228
  4. BETAMETHASONE VALERATE\FUSIDIC ACID [Suspect]
     Active Substance: BETAMETHASONE VALERATE\FUSIDIC ACID
     Indication: Product used for unknown indication
     Dosage: UNK, AS NEEDED (PRN)
     Dates: start: 20240228
  5. LACTULOSE [Suspect]
     Active Substance: LACTULOSE
     Indication: Product used for unknown indication
     Dosage: 15 MILLILITER, AS NEEDED (PRN)
     Route: 048
     Dates: start: 20240228
  6. CANESTEN CREAM [Suspect]
     Active Substance: CLOTRIMAZOLE
     Indication: Product used for unknown indication
     Dosage: PRN
     Dates: start: 20240228
  7. OMEPRAZOLE [Suspect]
     Active Substance: OMEPRAZOLE
     Indication: Product used for unknown indication
     Dosage: 40 MILLIGRAM, AS NEEDED (PRN)
     Route: 048
     Dates: start: 20240228
  8. FOLIC ACID [Suspect]
     Active Substance: FOLIC ACID
     Indication: Product used for unknown indication
     Dosage: CRUSHED
     Route: 048
     Dates: start: 20240228
  9. VITAMINS [Suspect]
     Active Substance: VITAMINS
     Indication: Product used for unknown indication
     Route: 048
     Dates: start: 20240228
  10. CEPHALEXIN [Suspect]
     Active Substance: CEPHALEXIN
     Indication: Product used for unknown indication
     Dosage: PRN
     Route: 048
     Dates: start: 20240228
  11. CALCIUM\CHOLECALCIFEROL [Suspect]
     Active Substance: CALCIUM\CHOLECALCIFEROL
     Indication: Product used for unknown indication
     Dosage: CRUSHED500MG/400IU
     Route: 048
     Dates: start: 20240228
  12. SODIUM PHOSPHATE, DIBASIC, DODECAHYDRATE\SODIUM PHOSPHATE, MONOBASIC [Suspect]
     Active Substance: SODIUM PHOSPHATE, DIBASIC, DODECAHYDRATE\SODIUM PHOSPHATE, MONOBASIC
     Indication: Product used for unknown indication
     Dosage: 21.4G/9.4GPRN
     Route: 054
     Dates: start: 20240228
  13. PHENYTOIN [Suspect]
     Active Substance: PHENYTOIN
     Indication: Product used for unknown indication
     Dosage: CRUSHED OR LIQUID 300MG/50ML
     Route: 048
     Dates: start: 20240228
  14. THIAMINE [Suspect]
     Active Substance: THIAMINE
     Indication: Product used for unknown indication
     Dosage: CRUSHED
     Route: 048
     Dates: start: 20240228
  15. 3M CAVILON ANTIFUNGAL [Suspect]
     Active Substance: MICONAZOLE NITRATE
     Indication: Product used for unknown indication
     Dosage: PRN
     Dates: start: 20240228
  16. CALDESENE [Suspect]
     Active Substance: TALC\ZINC OXIDE
     Indication: Product used for unknown indication
     Dosage: PRN
     Dates: start: 20240228
  17. CLOBAZAM [Suspect]
     Active Substance: CLOBAZAM
     Indication: Product used for unknown indication
     Dosage: CRUSHEDTARDE
     Route: 048
     Dates: start: 20240228
  18. CLOBAZAM [Suspect]
     Active Substance: CLOBAZAM
     Dosage: CRUSHED
     Route: 048
     Dates: start: 20240228
  19. PULMICORT TURBUHALER [Suspect]
     Active Substance: BUDESONIDE
     Indication: Product used for unknown indication
     Dosage: 1MG/2 MLPRN
     Dates: start: 20240228
  20. EPILIM [Suspect]
     Active Substance: VALPROATE SODIUM
     Indication: Product used for unknown indication
     Dosage: CRUSHED OR LIQUID 500MG/12.5ML
     Route: 048
     Dates: start: 20240228
  21. MIDAZOLAM [Suspect]
     Active Substance: MIDAZOLAM
     Indication: Product used for unknown indication
     Dosage: 10MG/2MLPRN
     Route: 002
     Dates: start: 20240228
  22. CETIRIZINE HYDROCHLORIDE [Suspect]
     Active Substance: CETIRIZINE HYDROCHLORIDE
     Indication: Product used for unknown indication
     Dosage: PRN
     Route: 048
     Dates: start: 20240228
  23. PREGABALIN [Suspect]
     Active Substance: PREGABALIN
     Indication: Product used for unknown indication
     Dosage: OPEN CAPSULE
     Route: 048
     Dates: start: 20240228
  24. CHOLECALCIFEROL [Suspect]
     Active Substance: CHOLECALCIFEROL
     Indication: Product used for unknown indication
     Dosage: CRUSHED
     Route: 048
     Dates: start: 20240228
  25. FAMOTIDINE [Suspect]
     Active Substance: FAMOTIDINE
     Indication: Product used for unknown indication
     Dosage: 500 MILLILITER, AS NEEDED (PRN)
     Dates: start: 20240228
  26. CHLOROMYCETIN [Suspect]
     Active Substance: CHLORAMPHENICOL
     Indication: Product used for unknown indication
     Dosage: PRN
     Dates: start: 20240228

REACTIONS (1)
  - Overdose [Unknown]
